FAERS Safety Report 11205738 (Version 2)
Quarter: 2015Q2

REPORT INFORMATION
  Report Type: Spontaneous
  Country: ES (occurrence: ES)
  Receive Date: 20150622
  Receipt Date: 20150622
  Transmission Date: 20150821
  Serious: Yes (Other)
  Sender: FDA-Public Use
  Company Number: ES-ABBVIE-15K-144-1410070-00

PATIENT
  Age: 30 Year
  Sex: Female

DRUGS (1)
  1. HUMIRA [Suspect]
     Active Substance: ADALIMUMAB
     Indication: CROHN^S DISEASE
     Dosage: LOAD DOSE
     Route: 065
     Dates: start: 20150407, end: 20150407

REACTIONS (3)
  - Amenorrhoea [Unknown]
  - Arthralgia [Unknown]
  - Hypertension [Unknown]

NARRATIVE: CASE EVENT DATE: 20150418
